FAERS Safety Report 6163040-0 (Version None)
Quarter: 2009Q2

REPORT INFORMATION
  Report Type: 
  Country: None (occurrence: None)
  Receive Date: 20090422
  Receipt Date: 20070515
  Transmission Date: 20091009
  Serious: Yes (Hospitalization, Other)
  Sender: FDA-Public Use
  Company Number: US-ASTRAZENECA-2006UW10974

PATIENT
  Age: 13390 Day
  Sex: Female
  Weight: 113.4 kg

DRUGS (21)
  1. SEROQUEL [Suspect]
     Indication: BIPOLAR DISORDER
     Route: 048
     Dates: start: 20000101, end: 20060101
  2. SEROQUEL [Suspect]
     Indication: SCHIZOPHRENIA
     Route: 048
     Dates: start: 20000101, end: 20060101
  3. SEROQUEL [Suspect]
     Route: 048
     Dates: start: 20060101
  4. SEROQUEL [Suspect]
     Route: 048
     Dates: start: 20060101
  5. SEROQUEL [Suspect]
     Dosage: 100 MG - 200 MG
     Route: 048
     Dates: start: 19980811
  6. SEROQUEL [Suspect]
     Dosage: 100 MG - 200 MG
     Route: 048
     Dates: start: 19980811
  7. CLOZARIL [Concomitant]
  8. RISPERDAL [Concomitant]
  9. ZYPREXA [Concomitant]
  10. XANAX [Concomitant]
  11. ESKALITH CR [Concomitant]
  12. ZOLOFT [Concomitant]
  13. TRIAVIL [Concomitant]
  14. ABILIFY [Concomitant]
  15. LITHIUM CARBONATE [Concomitant]
  16. VICODIN [Concomitant]
  17. PREVACID [Concomitant]
  18. PEPCID [Concomitant]
  19. RESTORIL [Concomitant]
  20. LEVAQUIN [Concomitant]
  21. TYLENOL [Concomitant]

REACTIONS (20)
  - ABDOMINAL PAIN [None]
  - AGITATION [None]
  - ANAEMIA [None]
  - ARTHRALGIA [None]
  - BACK PAIN [None]
  - BIPOLAR DISORDER [None]
  - COLITIS [None]
  - CONSTIPATION [None]
  - DEPRESSION [None]
  - DIABETES MELLITUS [None]
  - DYSPHAGIA [None]
  - FATIGUE [None]
  - HYPERTENSION [None]
  - HYPOTENSION [None]
  - MANIA [None]
  - MUSCULOSKELETAL PAIN [None]
  - PANIC ATTACK [None]
  - RECTAL HAEMORRHAGE [None]
  - SCHIZOAFFECTIVE DISORDER [None]
  - SUICIDAL IDEATION [None]
